FAERS Safety Report 6644763-3 (Version None)
Quarter: 2010Q1

REPORT INFORMATION
  Report Type: 
  Country: None (occurrence: None)
  Receive Date: 20100305
  Receipt Date: 20100220
  Transmission Date: 20100710
  Serious: No
  Sender: FDA-Public Use
  Company Number: 2010-00276

PATIENT
  Sex: Female

DRUGS (1)
  1. ALL ZICAM PRODUCTS [Suspect]
     Indication: NASOPHARYNGITIS

REACTIONS (2)
  - AGEUSIA [None]
  - ANOSMIA [None]
